FAERS Safety Report 5794979-3 (Version None)
Quarter: 2008Q2

REPORT INFORMATION
  Report Type: 
  Country: None (occurrence: None)
  Receive Date: 20080627
  Receipt Date: 20080627
  Transmission Date: 20081010
  Serious: No
  Sender: FDA-Public Use
  Company Number: None

PATIENT

DRUGS (2)
  1. FENTANYL [Suspect]
     Indication: CHEST PAIN
     Dosage: 1 PATCH EVERY 48 HOURS
  2. FENTANYL [Suspect]
     Indication: MYOCARDIAL INFARCTION
     Dosage: 1 PATCH EVERY 48 HOURS

REACTIONS (3)
  - DEVICE FAILURE [None]
  - DRUG INEFFECTIVE [None]
  - PHARMACEUTICAL PRODUCT COMPLAINT [None]
